FAERS Safety Report 10744843 (Version 3)
Quarter: 2015Q1

REPORT INFORMATION
  Report Type: Spontaneous
  Country: US (occurrence: US)
  Receive Date: 20150128
  Receipt Date: 20150311
  Transmission Date: 20150721
  Serious: Yes (Death, Other)
  Sender: FDA-Public Use
  Company Number: US-UCBSA-2014012906

PATIENT
  Age: 81 Year
  Sex: Male
  Weight: 86 kg

DRUGS (3)
  1. NEUPRO [Suspect]
     Active Substance: ROTIGOTINE
     Indication: OFF LABEL USE
  2. NEUPRO [Suspect]
     Active Substance: ROTIGOTINE
     Indication: MULTIPLE SCLEROSIS
     Dosage: 6 MG, ONCE DAILY (QD)
     Route: 062
     Dates: start: 201402, end: 20141214
  3. REQUIP [Concomitant]
     Active Substance: ROPINIROLE HYDROCHLORIDE
     Indication: PRODUCT USED FOR UNKNOWN INDICATION
     Dosage: EVERY 2 HOURS

REACTIONS (6)
  - Peritonitis [Fatal]
  - Therapeutic response unexpected [Not Recovered/Not Resolved]
  - Diverticular perforation [Fatal]
  - Lung neoplasm malignant [Not Recovered/Not Resolved]
  - Muscle spasms [Recovered/Resolved]
  - Off label use [Unknown]

NARRATIVE: CASE EVENT DATE: 2014
